FAERS Safety Report 4853690-3 (Version None)
Quarter: 2005Q4

REPORT INFORMATION
  Report Type: 
  Country: None (occurrence: None)
  Receive Date: 20051212
  Receipt Date: 20051121
  Transmission Date: 20060501
  Serious: Yes (Hospitalization)
  Sender: FDA-Public Use
  Company Number: ZA200511001946

PATIENT
  Age: 33 Year
  Sex: Male

DRUGS (3)
  1. CYMBALTA [Suspect]
     Indication: MAJOR DEPRESSION
     Dosage: 480 MG, OTHER, ORAL
     Route: 048
     Dates: start: 20051114, end: 20051114
  2. COMPRALGYL (ACETYLSALICYLIC ACID, CODEINE PHOSPHATE, ETHENZEMIDE, PHEN [Concomitant]
  3. ALPRAZOLAM [Concomitant]

REACTIONS (8)
  - BLOOD CREATINE PHOSPHOKINASE INCREASED [None]
  - BLOOD CREATINE PHOSPHOKINASE MB INCREASED [None]
  - CHEST PAIN [None]
  - HEART RATE INCREASED [None]
  - HYPERHIDROSIS [None]
  - HYPERTENSION [None]
  - MULTIPLE DRUG OVERDOSE INTENTIONAL [None]
  - SUICIDE ATTEMPT [None]
